FAERS Safety Report 6464944-1 (Version None)
Quarter: 2009Q4

REPORT INFORMATION
  Report Type: 
  Country: None (occurrence: None)
  Receive Date: 20091201
  Receipt Date: 20091119
  Transmission Date: 20100525
  Serious: Yes (Hospitalization)
  Sender: FDA-Public Use
  Company Number: CN-BRISTOL-MYERS SQUIBB COMPANY-14846448

PATIENT
  Age: 60 Year
  Sex: Male

DRUGS (2)
  1. ERBITUX [Suspect]
     Indication: GASTRIC CANCER
     Dosage: 1ST CYCLE:14APR-JUL08(12WKS),2ND:SEP-NOV08(6WKS),3RD:09OCT09-OCT09;RECENT INF:16NOV09.
     Route: 042
     Dates: start: 20080414, end: 20080701
  2. IRINOTECAN HCL [Concomitant]
     Indication: GASTRIC CANCER
     Route: 042

REACTIONS (3)
  - DIPLOPIA [None]
  - GAIT DISTURBANCE [None]
  - LEUKODYSTROPHY [None]
